FAERS Safety Report 20592789 (Version 15)
Quarter: 2022Q3

REPORT INFORMATION
  Report Type: Spontaneous
  Country: GB (occurrence: GB)
  Receive Date: 20220315
  Receipt Date: 20220930
  Transmission Date: 20221027
  Serious: Yes (Life-Threatening, Hospitalization, Disabling, Other)
  Sender: FDA-Public Use
  Company Number: None

PATIENT
  Age: 56 Year
  Sex: Female
  Weight: 80 kg

DRUGS (14)
  1. LANSOPRAZOLE [Suspect]
     Active Substance: LANSOPRAZOLE
     Indication: Reflux laryngitis
     Dosage: UNK
     Route: 065
  2. OMEPRAZOLE [Suspect]
     Active Substance: OMEPRAZOLE
     Indication: Gastrooesophageal reflux disease
     Dosage: 20 MILLIGRAM
     Route: 048
     Dates: start: 20190118, end: 20190120
  3. OMEPRAZOLE [Suspect]
     Active Substance: OMEPRAZOLE
     Indication: Reflux laryngitis
     Dosage: 200 MILLIGRAM, QD
     Route: 048
  4. OMEPRAZOLE [Suspect]
     Active Substance: OMEPRAZOLE
     Dosage: UNK
     Route: 065
  5. OMEPRAZOLE [Suspect]
     Active Substance: OMEPRAZOLE
     Dosage: UNK
     Route: 065
  6. SOLIFENACIN [Suspect]
     Active Substance: SOLIFENACIN
     Indication: Product used for unknown indication
     Dosage: UNK (FILM-COATED TABLET) ROUTE:065
     Route: 048
  7. MODERNA COVID-19 VACCINE [Suspect]
     Active Substance: ELASOMERAN
     Indication: COVID-19 immunisation
     Dosage: 1 DOSAGE FORM
     Route: 030
     Dates: start: 20211204, end: 20211204
  8. DOMPERIDONE [Suspect]
     Active Substance: DOMPERIDONE
     Indication: Product used for unknown indication
     Dosage: UNK
     Route: 048
  9. TRIMETHOPRIM [Suspect]
     Active Substance: TRIMETHOPRIM
     Indication: Urinary tract infection
     Dosage: 200 MILLIGRAM, QD
     Route: 048
     Dates: start: 20190118, end: 20190120
  10. TRIMETHOPRIM [Suspect]
     Active Substance: TRIMETHOPRIM
     Dosage: 400 MILLIGRAM, QD
     Route: 048
     Dates: start: 20190118, end: 20190120
  11. TRIMETHOPRIM [Suspect]
     Active Substance: TRIMETHOPRIM
     Dosage: 1200 MILLIGRAM
     Route: 065
  12. TRIMETHOPRIM [Suspect]
     Active Substance: TRIMETHOPRIM
     Dosage: UNK MILLIGRAM
     Route: 048
  13. BECLOMETHASONE [Concomitant]
     Active Substance: BECLOMETHASONE
     Indication: Product used for unknown indication
     Dosage: UNK
     Route: 065
  14. DULOXETINE [Concomitant]
     Active Substance: DULOXETINE
     Indication: Product used for unknown indication
     Dosage: UNK
     Route: 065

REACTIONS (21)
  - Abdominal pain [Recovered/Resolved]
  - Abdominal pain upper [Recovering/Resolving]
  - Blood sodium decreased [Unknown]
  - Blood potassium decreased [Unknown]
  - Condition aggravated [Unknown]
  - Contusion [Not Recovered/Not Resolved]
  - Drug interaction [Unknown]
  - Diarrhoea [Recovered/Resolved]
  - Food poisoning [Not Recovered/Not Resolved]
  - Feeling abnormal [Unknown]
  - Genital ulceration [Recovered/Resolved]
  - Genital pain [Recovered/Resolved]
  - Gastrointestinal pain [Not Recovered/Not Resolved]
  - Irritable bowel syndrome [Unknown]
  - Illness [Recovering/Resolving]
  - Malaise [Unknown]
  - Mucosal inflammation [Recovered/Resolved]
  - Nightmare [Not Recovered/Not Resolved]
  - Oral pain [Recovering/Resolving]
  - Peripheral swelling [Unknown]
  - Vomiting [Unknown]

NARRATIVE: CASE EVENT DATE: 20190121
